FAERS Safety Report 24948979 (Version 1)
Quarter: 2025Q1

REPORT INFORMATION
  Report Type: Spontaneous
  Country: US (occurrence: None)
  Receive Date: 20250209
  Receipt Date: 20250209
  Transmission Date: 20250409
  Serious: Yes (Other)
  Sender: FDA-CTU
  Company Number: None

PATIENT
  Sex: Female

DRUGS (11)
  1. SIMLANDI [Suspect]
     Active Substance: ADALIMUMAB-RYVK
     Indication: Psoriatic arthropathy
     Route: 058
     Dates: start: 20250115
  2. ALLEGRA ALRG [Concomitant]
  3. AMLODIPINE [Concomitant]
     Active Substance: AMLODIPINE BESYLATE
  4. ATORVASTATIN [Concomitant]
     Active Substance: ATORVASTATIN
  5. BOTOX [Concomitant]
     Active Substance: ONABOTULINUMTOXINA
  6. CABERGOLINE [Concomitant]
     Active Substance: CABERGOLINE
  7. DEPO-MEDROL [Concomitant]
     Active Substance: METHYLPREDNISOLONE ACETATE
  8. DEXAMETH PHO [Concomitant]
  9. DIPRIVAN [Concomitant]
     Active Substance: PROPOFOL
  10. DOTAREM [Concomitant]
     Active Substance: GADOTERATE MEGLUMINE
  11. ESTRADIOL [Concomitant]
     Active Substance: ESTRADIOL

REACTIONS (6)
  - Fatigue [None]
  - Headache [None]
  - Upper respiratory tract infection [None]
  - Nasal congestion [None]
  - Therapy interrupted [None]
  - Loss of personal independence in daily activities [None]
